FAERS Safety Report 5679914-0 (Version None)
Quarter: 2008Q1

REPORT INFORMATION
  Report Type: 
  Country: None (occurrence: None)
  Receive Date: 20080324
  Receipt Date: 20080320
  Transmission Date: 20080703
  Serious: Yes (Other)
  Sender: FDA-Public Use
  Company Number: 2008SP004888

PATIENT
  Age: 25 Year
  Sex: Female

DRUGS (2)
  1. DESLORATADINE [Suspect]
     Indication: RHINITIS ALLERGIC
     Dosage: 5 MG; QD; PO
     Route: 048
  2. FORADIL [Concomitant]

REACTIONS (2)
  - DYSPHAGIA [None]
  - TYPE IV HYPERSENSITIVITY REACTION [None]
